FAERS Safety Report 9222400 (Version 1)
Quarter: 2013Q2

REPORT INFORMATION
  Report Type: Spontaneous
  Country: US (occurrence: US)
  Receive Date: 20130410
  Receipt Date: 20130410
  Transmission Date: 20140414
  Serious: Yes (Hospitalization)
  Sender: FDA-Public Use
  Company Number: US-BAYER-2013-044489

PATIENT
  Age: 44 Year
  Sex: Female

DRUGS (7)
  1. YASMIN [Suspect]
  2. ADDERALL [Concomitant]
     Dosage: 20 MG, UNK
     Route: 048
     Dates: start: 20060321
  3. EFFEXOR XR [Concomitant]
     Dosage: 150 MG, UNK
     Route: 048
     Dates: start: 20060321
  4. MORPHINE [Concomitant]
  5. SENOKOT [Concomitant]
  6. COLACE [Concomitant]
  7. EFFEXOR [Concomitant]

REACTIONS (2)
  - Pulmonary embolism [Recovered/Resolved]
  - Deep vein thrombosis [None]
